FAERS Safety Report 22052010 (Version 2)
Quarter: 2023Q2

REPORT INFORMATION
  Report Type: Report from Study
  Country: US (occurrence: US)
  Receive Date: 20230302
  Receipt Date: 20230410
  Transmission Date: 20230722
  Serious: Yes (Hospitalization, Other)
  Sender: FDA-Public Use
  Company Number: US-ABBVIE-4323645

PATIENT
  Sex: Male
  Weight: 72.574 kg

DRUGS (1)
  1. IMBRUVICA [Suspect]
     Active Substance: IBRUTINIB
     Indication: Chronic lymphocytic leukaemia
     Route: 048
     Dates: start: 20140326, end: 20230224

REACTIONS (5)
  - Atrial fibrillation [Recovering/Resolving]
  - Chronic lymphocytic leukaemia [Unknown]
  - Weight decreased [Unknown]
  - Renal disorder [Unknown]
  - Cardiac disorder [Unknown]

NARRATIVE: CASE EVENT DATE: 20150101
